FAERS Safety Report 5416438-X (Version None)
Quarter: 2007Q3

REPORT INFORMATION
  Report Type: 
  Country: None (occurrence: None)
  Receive Date: 20070814
  Receipt Date: 20070802
  Transmission Date: 20080115
  Serious: Yes (Hospitalization)
  Sender: FDA-Public Use
  Company Number: 1-15185409 /MED-07158

PATIENT
  Age: 44 Year
  Sex: Female

DRUGS (3)
  1. GABAPENTIN [Suspect]
     Indication: INTENTIONAL OVERDOSE
     Dosage: ORAL
     Route: 048
  2. NEFAZODONE (MFR UNKNOWN) [Suspect]
     Indication: INTENTIONAL OVERDOSE
     Dosage: ORAL
     Route: 048
  3. DIGOXIN [Concomitant]

REACTIONS (18)
  - BLOOD ETHANOL INCREASED [None]
  - BLOOD PRESSURE DIASTOLIC DECREASED [None]
  - CARDIOTOXICITY [None]
  - CONDUCTION DISORDER [None]
  - COORDINATION ABNORMAL [None]
  - DIZZINESS [None]
  - DRUG INTERACTION [None]
  - DRUG LEVEL INCREASED [None]
  - DRUG SCREEN POSITIVE [None]
  - DRUG TOXICITY [None]
  - ELECTROCARDIOGRAM QRS COMPLEX PROLONGED [None]
  - ELECTROCARDIOGRAM QT PROLONGED [None]
  - HYPOTENSION [None]
  - LETHARGY [None]
  - MENTAL STATUS CHANGES [None]
  - MULTIPLE DRUG OVERDOSE [None]
  - SINUS TACHYCARDIA [None]
  - SOMNOLENCE [None]
